FAERS Safety Report 13305779 (Version 1)
Quarter: 2017Q1

REPORT INFORMATION
  Report Type: Spontaneous
  Country: DK (occurrence: DK)
  Receive Date: 20170308
  Receipt Date: 20170308
  Transmission Date: 20170428
  Serious: Yes (Other)
  Sender: FDA-Public Use
  Company Number: DK-LUPIN PHARMACEUTICALS INC.-2017-00936

PATIENT
  Age: 15 Year
  Sex: Female

DRUGS (5)
  1. QUETIAPINE. [Suspect]
     Active Substance: QUETIAPINE
     Indication: MANIA
     Dosage: UNK UNK,UNK,UNKNOWN
     Route: 065
  2. VALPROATE [Suspect]
     Active Substance: VALPROIC ACID
     Dosage: UNK UNK,UNK,UNKNOWN
     Route: 065
  3. ARIPIPRAZOLE. [Suspect]
     Active Substance: ARIPIPRAZOLE
     Dosage: UNK UNK,UNK,
     Route: 065
  4. ARIPIPRAZOLE. [Suspect]
     Active Substance: ARIPIPRAZOLE
     Indication: MANIA
     Dosage: UNK UNK,UNK,
     Route: 065
  5. VALPROATE [Suspect]
     Active Substance: VALPROIC ACID
     Indication: MANIA
     Dosage: UNK UNK,UNK,
     Route: 065

REACTIONS (3)
  - Off label use [Unknown]
  - Leukopenia [Unknown]
  - Drug interaction [Unknown]
